FAERS Safety Report 8900882 (Version 1)
Quarter: 2012Q4

REPORT INFORMATION
  Report Type: 
  Country: CA (occurrence: CA)
  Receive Date: 20121109
  Receipt Date: 20121109
  Transmission Date: 20130627
  Serious: Yes (Other)
  Sender: FDA-Public Use
  Company Number: CA-MYLANLABS-2012S1022603

PATIENT
  Age: 47 Year
  Sex: Male

DRUGS (1)
  1. PHENYTOIN [Suspect]
     Route: 065

REACTIONS (4)
  - Carnitine deficiency [Recovered/Resolved]
  - Encephalopathy [Recovered/Resolved]
  - Hyperammonaemia [Recovered/Resolved]
  - Anticonvulsant drug level above therapeutic [Recovered/Resolved]
